FAERS Safety Report 5134923-5 (Version None)
Quarter: 2006Q4

REPORT INFORMATION
  Report Type: 
  Country: None (occurrence: None)
  Receive Date: 20061019
  Receipt Date: 20061003
  Transmission Date: 20070319
  Serious: Yes (Congenital Anomaly)
  Sender: FDA-Public Use
  Company Number: 8019233

PATIENT
  Sex: 0

DRUGS (6)
  1. KEPPRA [Suspect]
     Dosage: 4000 MG TRP
     Route: 064
     Dates: start: 20060501
  2. PRENATAL VITAMINS [Concomitant]
  3. FOLIC ACID [Concomitant]
  4. ALBUTEROL [Concomitant]
  5. PHENYTOIN [Concomitant]
  6. VALPROATE SODIUM [Concomitant]

REACTIONS (3)
  - CLEFT LIP [None]
  - CLEFT PALATE [None]
  - DRUG EXPOSURE DURING PREGNANCY [None]
